FAERS Safety Report 8432790-5 (Version None)
Quarter: 2012Q2

REPORT INFORMATION
  Report Type: 
  Country: None (occurrence: None)
  Receive Date: 20120613
  Receipt Date: 20120607
  Transmission Date: 20120825
  Serious: No
  Sender: FDA-Public Use
  Company Number: US-PFIZER INC-2012138507

PATIENT
  Sex: Female

DRUGS (6)
  1. CORGARD [Suspect]
     Dosage: UNK
  2. VYTORIN [Suspect]
     Dosage: UNK
  3. NIACIN [Suspect]
     Dosage: UNK
  4. NIASPAN [Suspect]
     Dosage: UNK
  5. ROCEPHIN [Suspect]
     Dosage: UNK
  6. SEPTRA [Suspect]
     Dosage: UNK

REACTIONS (1)
  - DRUG HYPERSENSITIVITY [None]
